FAERS Safety Report 13095046 (Version 6)
Quarter: 2017Q3

REPORT INFORMATION
  Report Type: Report from Study
  Country: None (occurrence: RO)
  Receive Date: 20170106
  Receipt Date: 20170706
  Transmission Date: 20171127
  Serious: Yes (Hospitalization, Other)
  Sender: FDA-Public Use
  Company Number: RO-ABBVIE-17P-135-1827843-00

PATIENT
  Age: 68 Year
  Sex: Female
  Weight: 60 kg

DRUGS (17)
  1. PRAMIPEXOLE. [Concomitant]
     Active Substance: PRAMIPEXOLE
     Indication: PARKINSON^S DISEASE
     Route: 048
     Dates: start: 2011, end: 20161117
  2. BIOTICS [Concomitant]
     Indication: ADJUVANT THERAPY
     Dosage: BIOTICS-LACTOBACILLUS ACIDOPHILUS 4,72 MG, BIFIDOBACTERIUM BREVE 2,02MG
     Route: 048
     Dates: start: 20161021, end: 20161127
  3. CONTROLOC [Concomitant]
     Active Substance: PANTOPRAZOLE SODIUM
     Indication: GASTROSTOMY
     Route: 042
     Dates: start: 20161121, end: 20161127
  4. SER FIZIOLOGIC [Concomitant]
     Indication: PRODUCT USED FOR UNKNOWN INDICATION
     Route: 042
     Dates: start: 20161121, end: 20161127
  5. NO-SPA [Concomitant]
     Active Substance: DROTAVERINE HYDROCHLORIDE
     Indication: GASTROSTOMY
     Route: 051
     Dates: start: 20161121, end: 20161127
  6. DUODOPA [Suspect]
     Active Substance: CARBIDOPA\LEVODOPA
     Route: 050
     Dates: start: 20161121
  7. AZILECT [Concomitant]
     Active Substance: RASAGILINE MESYLATE
     Indication: PARKINSON^S DISEASE
     Route: 048
     Dates: start: 201609, end: 20161117
  8. PANTOPRAZOLUM [Concomitant]
     Indication: GASTRIC ULCER
     Route: 048
     Dates: start: 20170112, end: 20170115
  9. DUODOPA [Suspect]
     Active Substance: CARBIDOPA\LEVODOPA
     Indication: PARKINSON^S DISEASE
     Dosage: MD: 8ML, CD: 3.9ML, ED: 1.9ML
     Route: 050
     Dates: start: 20161118, end: 20161121
  10. URSOFALK [Concomitant]
     Active Substance: URSODIOL
     Indication: GASTRITIS PROPHYLAXIS
     Route: 048
     Dates: start: 20161128
  11. ALGOCALMIN [Concomitant]
     Active Substance: METAMIZOLE SODIUM
     Indication: GASTROSTOMY
     Route: 051
     Dates: start: 20161121, end: 20161127
  12. ISICOM [Concomitant]
     Active Substance: CARBIDOPA\LEVODOPA
     Indication: PARKINSON^S DISEASE
     Dosage: 100-200MG
     Route: 048
     Dates: start: 20161231
  13. TOTHEMA [Concomitant]
     Active Substance: COPPER GLUCONATE\FERROUS GLUCONATE\MANGANESE GLUCONATE
     Indication: GASTRIC HAEMORRHAGE
     Route: 048
     Dates: start: 20170113
  14. CEFORT [Concomitant]
     Active Substance: CEFTRIAXONE SODIUM
     Indication: INFECTION PROPHYLAXIS
     Route: 042
     Dates: start: 20161121, end: 20161127
  15. EPICOGEL [Concomitant]
     Indication: GASTRIC ULCER
     Route: 048
     Dates: start: 20170112, end: 20170115
  16. DULOXETINA [Concomitant]
     Active Substance: DULOXETINE
     Indication: DEPRESSION
     Route: 048
     Dates: start: 20161129
  17. CONTROLOC [Concomitant]
     Active Substance: PANTOPRAZOLE SODIUM
     Indication: GASTRITIS PROPHYLAXIS
     Route: 048
     Dates: start: 20161128

REACTIONS (4)
  - Hypotension [Recovered/Resolved]
  - Hyponatraemia [Recovered/Resolved]
  - Seizure [Recovered/Resolved]
  - Humerus fracture [Not Recovered/Not Resolved]

NARRATIVE: CASE EVENT DATE: 20161227
